FAERS Safety Report 11169291 (Version 2)
Quarter: 2015Q2

REPORT INFORMATION
  Report Type: Spontaneous
  Country: RU (occurrence: RU)
  Receive Date: 20150605
  Receipt Date: 20150611
  Transmission Date: 20150821
  Serious: Yes (Hospitalization, Other)
  Sender: FDA-Public Use
  Company Number: RU-PFIZER INC-2015187698

PATIENT
  Age: 22 Year
  Sex: Female

DRUGS (7)
  1. VEROSPIRON [Concomitant]
     Active Substance: SPIRONOLACTONE
     Dosage: UNK
     Dates: start: 2012
  2. FUROSEMIDUM [Concomitant]
     Active Substance: FUROSEMIDE
     Dosage: UNK
     Dates: start: 2012
  3. BISOPROLOLUM [Concomitant]
     Dosage: UNK
     Dates: start: 2012
  4. VIAGRA [Suspect]
     Active Substance: SILDENAFIL CITRATE
     Indication: HEART DISEASE CONGENITAL
     Dosage: 25 MG, 1X/DAY
     Route: 048
     Dates: start: 201208, end: 2013
  5. CARDIOMAGNYL [Concomitant]
     Active Substance: ASPIRIN\MAGNESIUM HYDROXIDE
     Dosage: UNK
     Dates: start: 2012
  6. VIAGRA [Suspect]
     Active Substance: SILDENAFIL CITRATE
     Dosage: UNK
  7. VIAGRA [Suspect]
     Active Substance: SILDENAFIL CITRATE
     Indication: PULMONARY ARTERIAL PRESSURE
     Dosage: 25 MG, 3X/DAY
     Route: 048
     Dates: start: 2013

REACTIONS (7)
  - Dyspnoea [Recovered/Resolved]
  - Product quality issue [Unknown]
  - Foaming at mouth [Recovered/Resolved]
  - Off label use [Not Recovered/Not Resolved]
  - Pulmonary oedema [Recovered/Resolved]
  - Nausea [Recovered/Resolved]
  - Vomiting [Recovered/Resolved]

NARRATIVE: CASE EVENT DATE: 201208
